FAERS Safety Report 7323396-X (Version None)
Quarter: 2011Q1

REPORT INFORMATION
  Report Type: 
  Country: None (occurrence: None)
  Receive Date: 20110301
  Receipt Date: 20110223
  Transmission Date: 20110831
  Serious: Yes (Hospitalization, Other)
  Sender: FDA-Public Use
  Company Number: US-GENZYME-THYM-1002320

PATIENT
  Age: 3 Year
  Sex: Male

DRUGS (21)
  1. DEXAMETHASONE [Concomitant]
     Indication: BONE MARROW CONDITIONING REGIMEN
  2. METHOTREXATE [Concomitant]
  3. METHADONE [Concomitant]
     Indication: PAIN
  4. FK 506 [Concomitant]
     Indication: GRAFT VERSUS HOST DISEASE
  5. FLUCONAZOLE [Concomitant]
     Indication: PRODUCT USED FOR UNKNOWN INDICATION
  6. ACETAMINOPHEN [Concomitant]
     Indication: PAIN
     Dosage: UNK
  7. MYCOPHENOLATE MOFETIL [Concomitant]
     Indication: PRODUCT USED FOR UNKNOWN INDICATION
  8. ETOPOSIDE [Concomitant]
     Indication: BONE MARROW CONDITIONING REGIMEN
  9. CYCLOPHOSPHAMIDE [Concomitant]
     Indication: BONE MARROW CONDITIONING REGIMEN
  10. METHOTREXATE [Concomitant]
     Indication: BONE MARROW CONDITIONING REGIMEN
  11. THYMOGLOBULIN [Suspect]
     Indication: PROPHYLAXIS AGAINST GRAFT VERSUS HOST DISEASE
     Dosage: UNK
  12. VINCRISTINE [Concomitant]
     Indication: BONE MARROW CONDITIONING REGIMEN
  13. PENICILLIN [Concomitant]
     Indication: PRODUCT USED FOR UNKNOWN INDICATION
  14. ELSPAR [Concomitant]
     Indication: BONE MARROW CONDITIONING REGIMEN
  15. CYCLOSPORINE [Concomitant]
     Indication: PROPHYLAXIS AGAINST GRAFT VERSUS HOST DISEASE
  16. MERCAPTOPURINE [Concomitant]
     Indication: BONE MARROW CONDITIONING REGIMEN
  17. ACYCLOVIR [Concomitant]
     Indication: PRODUCT USED FOR UNKNOWN INDICATION
  18. PANTOPRAZOLE [Concomitant]
     Indication: PRODUCT USED FOR UNKNOWN INDICATION
  19. CYTARABINE [Concomitant]
     Indication: BONE MARROW CONDITIONING REGIMEN
  20. HYDROCODONE [Concomitant]
     Indication: PAIN
  21. METHYLPREDNISOLONE [Concomitant]
     Indication: PRODUCT USED FOR UNKNOWN INDICATION

REACTIONS (3)
  - PNEUMOPERITONEUM [None]
  - PNEUMATOSIS INTESTINALIS [None]
  - ACUTE GRAFT VERSUS HOST DISEASE [None]
